FAERS Safety Report 8848145 (Version 2)
Quarter: 2015Q2

REPORT INFORMATION
  Report Type: Report from Study
  Country: US (occurrence: US)
  Receive Date: 20121018
  Receipt Date: 20150629
  Transmission Date: 20150821
  Serious: Yes (Disabling)
  Sender: FDA-Public Use
  Company Number: US-ROCHE-1118634

PATIENT
  Sex: Female
  Weight: 48.2 kg

DRUGS (1)
  1. NUTROPIN AQ [Suspect]
     Active Substance: SOMATROPIN
     Indication: DWARFISM
     Dosage: 0.5MG, 7 INJ PER WEEK
     Route: 058

REACTIONS (2)
  - General physical health deterioration [Unknown]
  - Disabled relative [Unknown]
